FAERS Safety Report 20245206 (Version 1)
Quarter: 2021Q4

REPORT INFORMATION
  Report Type: Spontaneous
  Country: US (occurrence: US)
  Receive Date: 20211229
  Receipt Date: 20211229
  Transmission Date: 20220303
  Serious: No
  Sender: FDA-Public Use
  Company Number: US-GLENMARK PHARMACEUTICALS-2021GMK068685

PATIENT

DRUGS (2)
  1. CALCIPOTRIENE [Suspect]
     Active Substance: CALCIPOTRIENE
     Indication: Psoriasis
     Dosage: UNK UNK, BID, (FROM MONDAY TO THURSDAY)
     Route: 061
  2. FLUOCINONIDE [Concomitant]
     Active Substance: FLUOCINONIDE
     Indication: Psoriasis
     Dosage: UNK, BID, (FRIDAY TO SUNDAY)
     Route: 061

REACTIONS (5)
  - Decreased appetite [Unknown]
  - Vomiting [Unknown]
  - Diarrhoea [Unknown]
  - Gastrointestinal disorder [Unknown]
  - Malaise [Unknown]
